FAERS Safety Report 7818968-X (Version None)
Quarter: 2011Q4

REPORT INFORMATION
  Report Type: 
  Country: None (occurrence: None)
  Receive Date: 20111017
  Receipt Date: 20111017
  Transmission Date: 20120403
  Serious: Yes (Other)
  Sender: FDA-Public Use
  Company Number: None

PATIENT
  Sex: Male
  Weight: 70 kg

DRUGS (1)
  1. NEXAVAR [Suspect]
     Indication: HEPATIC NEOPLASM MALIGNANT
     Dosage: NEXAVAR 200MG 2T PO BID PO
     Route: 048
     Dates: start: 20110603, end: 20110706

REACTIONS (1)
  - DRUG INEFFECTIVE [None]
